FAERS Safety Report 5669530-9 (Version None)
Quarter: 2008Q1

REPORT INFORMATION
  Report Type: 
  Country: None (occurrence: None)
  Receive Date: 20080317
  Receipt Date: 20080310
  Transmission Date: 20080703
  Serious: Yes (Hospitalization)
  Sender: FDA-Public Use
  Company Number: PHEH2008US02340

PATIENT
  Age: 37 Year
  Sex: Female

DRUGS (3)
  1. SANDOSTATIN [Suspect]
     Indication: GASTROINTESTINAL HAEMORRHAGE
     Dosage: 1000 UG, ONCE/SINGLE
     Route: 042
     Dates: start: 20080225, end: 20080225
  2. SANDOSTATIN [Suspect]
     Dosage: 50 UG, HOURLY
     Route: 042
     Dates: start: 20080225, end: 20080227
  3. LEVOTHYROXINE SODIUM [Concomitant]
     Indication: HYPOTHYROIDISM
     Dosage: 100 MCG DAILY

REACTIONS (2)
  - ACCIDENTAL OVERDOSE [None]
  - INCORRECT DOSE ADMINISTERED [None]
